FAERS Safety Report 15134903 (Version 1)
Quarter: 2018Q3

REPORT INFORMATION
  Report Type: Report from Study
  Country: US (occurrence: US)
  Receive Date: 20180712
  Receipt Date: 20180712
  Transmission Date: 20181010
  Serious: Yes (Disabling, Other)
  Sender: FDA-Public Use
  Company Number: US-ROCHE-2150175

PATIENT
  Age: 54 Year
  Sex: Male
  Weight: 86 kg

DRUGS (3)
  1. BEVACIZUMAB. [Suspect]
     Active Substance: BEVACIZUMAB
     Indication: COLORECTAL CANCER METASTATIC
     Dosage: VER 30?90 MINUTES ON DAY 1,?DATE OF LAST DOSE ADMINSTERED 11/JUN/2018, DOSE 855 MG
     Route: 042
     Dates: start: 20180611
  2. CAPECITABINE. [Suspect]
     Active Substance: CAPECITABINE
     Indication: COLORECTAL CANCER METASTATIC
     Dosage: DAYS 1?14 OF A 21 DAYS CYCLE,?LAST DOSE ADMINSTERE 26/JUN/2018, DOSE 2000 MG
     Route: 048
  3. ATEZOLIZUMAB. [Suspect]
     Active Substance: ATEZOLIZUMAB
     Indication: COLORECTAL CANCER METASTATIC
     Dosage: OVER 60 MINUTES ON DAY 1
     Route: 042
     Dates: start: 20180227

REACTIONS (1)
  - Embolism [Unknown]

NARRATIVE: CASE EVENT DATE: 20180702
